FAERS Safety Report 4520708-7 (Version None)
Quarter: 2004Q4

REPORT INFORMATION
  Report Type: 
  Country: None (occurrence: None)
  Receive Date: 20041203
  Receipt Date: 20041122
  Transmission Date: 20050328
  Serious: Yes (Death, Hospitalization)
  Sender: FDA-Public Use
  Company Number: STA-AE-04-MTX-582

PATIENT
  Age: 66 Year
  Sex: Male

DRUGS (7)
  1. RHEUMATREX [Suspect]
     Indication: RHEUMATOID ARTHRITIS
     Dosage: 8 MG 1X PER 1 WK, ORAL
     Route: 048
     Dates: start: 20040522, end: 20040909
  2. PREDNISOLONE [Concomitant]
  3. MOBIC [Concomitant]
  4. SELBEX (TEPRENONE) [Concomitant]
  5. FOLIC ACID [Concomitant]
  6. .. [Concomitant]
  7. .. [Concomitant]

REACTIONS (10)
  - BLOOD BETA-D-GLUCAN INCREASED [None]
  - CARDIAC FAILURE [None]
  - CHEST PAIN [None]
  - CYTOMEGALOVIRUS INFECTION [None]
  - INTERSTITIAL LUNG DISEASE [None]
  - MULTI-ORGAN FAILURE [None]
  - PALPITATIONS [None]
  - PNEUMOCYSTIS CARINII PNEUMONIA [None]
  - PNEUMONIA [None]
  - RESPIRATORY FAILURE [None]
